FAERS Safety Report 7437210-5 (Version None)
Quarter: 2011Q2

REPORT INFORMATION
  Report Type: 
  Country: None (occurrence: None)
  Receive Date: 20110426
  Receipt Date: 20110421
  Transmission Date: 20111010
  Serious: Yes (Other)
  Sender: FDA-Public Use
  Company Number: JP-BRISTOL-MYERS SQUIBB COMPANY-15693328

PATIENT
  Age: 55 Year
  Sex: Female

DRUGS (1)
  1. KENACORT [Suspect]
     Indication: RHINITIS ALLERGIC
     Route: 030

REACTIONS (2)
  - HAEMORRHAGE [None]
  - BASEDOW'S DISEASE [None]
